FAERS Safety Report 17603170 (Version 2)
Quarter: 2020Q3

REPORT INFORMATION
  Report Type: Report from Study
  Country: BR (occurrence: BR)
  Receive Date: 20200331
  Receipt Date: 20200716
  Transmission Date: 20201102
  Serious: Yes (Hospitalization, Other)
  Sender: FDA-Public Use
  Company Number: NVSC2019BR062111

PATIENT
  Age: 46 Year
  Sex: Female

DRUGS (3)
  1. COSENTYX [Suspect]
     Active Substance: SECUKINUMAB
     Indication: PSORIASIS
     Dosage: 300 MG, QW
     Route: 065
     Dates: start: 20191031
  2. COSENTYX [Suspect]
     Active Substance: SECUKINUMAB
     Indication: PSORIATIC ARTHROPATHY
     Dosage: 300 MG, QW
     Route: 065
     Dates: start: 20191128
  3. COSENTYX [Suspect]
     Active Substance: SECUKINUMAB
     Dosage: UNK
     Route: 065
     Dates: start: 20200213

REACTIONS (28)
  - Ocular hyperaemia [Unknown]
  - Vomiting [Recovered/Resolved]
  - Discomfort [Not Recovered/Not Resolved]
  - Pyrexia [Unknown]
  - Pruritus [Unknown]
  - Periorbital swelling [Recovered/Resolved]
  - Pain [Not Recovered/Not Resolved]
  - Onycholysis [Not Recovered/Not Resolved]
  - Eye pruritus [Recovered/Resolved]
  - Vomiting [Recovered/Resolved]
  - Arthralgia [Not Recovered/Not Resolved]
  - Pain in extremity [Not Recovered/Not Resolved]
  - Bone disorder [Not Recovered/Not Resolved]
  - Nausea [Recovered/Resolved]
  - Hand deformity [Not Recovered/Not Resolved]
  - Chest pain [Recovered/Resolved]
  - Infection [Recovering/Resolving]
  - Urinary tract infection [Unknown]
  - Psoriasis [Not Recovered/Not Resolved]
  - Renal pain [Recovering/Resolving]
  - Nausea [Recovered/Resolved]
  - Foot deformity [Not Recovered/Not Resolved]
  - Hypertension [Recovered/Resolved]
  - Hypoaesthesia [Unknown]
  - Dyspnoea [Recovered/Resolved]
  - Diabetes mellitus [Recovered/Resolved]
  - Eye swelling [Recovered/Resolved]
  - Headache [Recovering/Resolving]

NARRATIVE: CASE EVENT DATE: 201910
